FAERS Safety Report 5202216-3 (Version None)
Quarter: 2006Q4

REPORT INFORMATION
  Report Type: 
  Country: None (occurrence: None)
  Receive Date: 20061010
  Receipt Date: 20060227
  Transmission Date: 20070319
  Serious: Yes (Hospitalization)
  Sender: FDA-Public Use
  Company Number: 2006P1000123

PATIENT
  Age: 76 Year
  Sex: Female
  Weight: 60 kg

DRUGS (13)
  1. RETEPLASE (RETEPLASE) [Suspect]
     Indication: ACUTE MYOCARDIAL INFARCTION
     Dosage: IV
     Route: 042
     Dates: start: 20050614, end: 20050614
  2. ABICIXIMAB (ABCIXIMAB) [Suspect]
     Indication: ACUTE MYOCARDIAL INFARCTION
     Dosage: IV
     Route: 042
     Dates: start: 20050614, end: 20050614
  3. CLOPIDOGREL [Concomitant]
  4. ASPIRIN [Concomitant]
  5. METOPROLOL SUCCINATE [Concomitant]
  6. FLUVASTATIN [Concomitant]
  7. OMEPRAZOLE [Concomitant]
  8. RAMIPRIL [Concomitant]
  9. GABAPENTIN [Concomitant]
  10. ALPRAZOLAM [Concomitant]
  11. CITALOPRAM HYDROBROMIDE [Concomitant]
  12. METAMIZOL /00039502/ [Concomitant]
  13. BISTON /00052501/ [Concomitant]

REACTIONS (1)
  - PULMONARY OEDEMA [None]
